FAERS Safety Report 20968645 (Version 1)
Quarter: 2022Q2

REPORT INFORMATION
  Report Type: Spontaneous
  Country: US (occurrence: None)
  Receive Date: 20220616
  Receipt Date: 20220616
  Transmission Date: 20220721
  Serious: Yes (Disabling)
  Sender: FDA-Public Use
  Company Number: None

PATIENT
  Sex: Male

DRUGS (2)
  1. ALPRAZOLAM [Suspect]
     Active Substance: ALPRAZOLAM
     Indication: Anxiety disorder
     Route: 048
  2. ALPRAZOLAM [Suspect]
     Active Substance: ALPRAZOLAM
     Indication: Panic disorder

REACTIONS (12)
  - Illness [None]
  - Toxicity to various agents [None]
  - Product complaint [None]
  - Manufacturing materials issue [None]
  - Headache [None]
  - Nausea [None]
  - Feeling abnormal [None]
  - Diarrhoea [None]
  - Dry skin [None]
  - Decreased appetite [None]
  - Arthralgia [None]
  - Palpitations [None]

NARRATIVE: CASE EVENT DATE: 20170602
